FAERS Safety Report 17647570 (Version 1)
Quarter: 2020Q2

REPORT INFORMATION
  Report Type: Spontaneous
  Country: US (occurrence: US)
  Receive Date: 20200409
  Receipt Date: 20200409
  Transmission Date: 20200713
  Serious: No
  Sender: FDA-Public Use
  Company Number: US-JNJFOC-20200319496

PATIENT
  Age: 89 Year
  Sex: Female
  Weight: 54.48 kg

DRUGS (1)
  1. TYLENOL [Suspect]
     Active Substance: ACETAMINOPHEN
     Indication: FRACTURE PAIN
     Dosage: 1 TABLET PER 1 TABLETS AT THE TIME SHE^S OUTSIDE THE HOSPITAL AND THE 2ND DAY THAT SHE^S HOME
     Route: 048
     Dates: start: 20200309

REACTIONS (2)
  - Feeling abnormal [Recovering/Resolving]
  - Incorrect dose administered [Unknown]

NARRATIVE: CASE EVENT DATE: 202003
